FAERS Safety Report 4452091-X (Version None)
Quarter: 2004Q3

REPORT INFORMATION
  Report Type: 
  Country: None (occurrence: None)
  Receive Date: 20040916
  Receipt Date: 20040903
  Transmission Date: 20050211
  Serious: Yes (Hospitalization)
  Sender: FDA-Public Use
  Company Number: JP-JNJFOC-20040706485

PATIENT
  Sex: Female
  Weight: 49 kg

DRUGS (24)
  1. REMICADE [Suspect]
     Indication: RHEUMATOID ARTHRITIS
     Route: 042
  2. RHEUMATREX [Suspect]
     Indication: RHEUMATOID ARTHRITIS
     Route: 049
  3. VOLTAREN-XR [Suspect]
     Indication: RHEUMATOID ARTHRITIS
  4. CYOTEC [Suspect]
     Indication: DRUG USE FOR UNKNOWN INDICATION
     Route: 049
  5. PREDONIN [Suspect]
     Indication: RHEUMATOID ARTHRITIS
     Route: 049
  6. FARNEZONE [Concomitant]
     Indication: RHEUMATOID ARTHRITIS
  7. RIMATIL [Concomitant]
     Indication: RHEUMATOID ARTHRITIS
     Route: 049
  8. SERASTAR [Concomitant]
     Indication: RHEUMATOID ARTHRITIS
  9. STICKZENOL A [Concomitant]
     Indication: RHEUMATOID ARTHRITIS
  10. INDOMETHACIN [Concomitant]
     Indication: RHEUMATOID ARTHRITIS
  11. SUVENYL [Concomitant]
     Indication: RHEUMATOID ARTHRITIS
  12. FOLIAMIN [Concomitant]
     Route: 049
  13. LAXOBERON [Concomitant]
     Route: 049
  14. SP TROACHES [Concomitant]
     Route: 049
  15. VITAMEDIN [Concomitant]
     Route: 049
  16. VITAMEDIN [Concomitant]
     Route: 049
  17. VITAMEDIN [Concomitant]
     Route: 049
  18. CEREKINON [Concomitant]
     Route: 049
  19. ASPARA CA [Concomitant]
     Route: 049
  20. JUVELA [Concomitant]
     Route: 049
  21. MAGNESIUM OXIDE [Concomitant]
     Route: 049
  22. ROCALTROL [Concomitant]
     Route: 049
  23. OMEPRAL [Concomitant]
     Route: 049
  24. EURODIN [Concomitant]
     Route: 049

REACTIONS (1)
  - ENTERITIS [None]
